FAERS Safety Report 18456531 (Version 1)
Quarter: 2020Q4

REPORT INFORMATION
  Report Type: Report from Study
  Country: US (occurrence: US)
  Receive Date: 20201103
  Receipt Date: 20201103
  Transmission Date: 20210114
  Serious: Yes (Death)
  Sender: FDA-Public Use
  Company Number: US-PFIZER INC-2020425204

PATIENT
  Sex: Female

DRUGS (1)
  1. METHOTREXATE SODIUM. [Suspect]
     Active Substance: METHOTREXATE SODIUM
     Dosage: UNK

REACTIONS (7)
  - Blister [Fatal]
  - Coagulopathy [Fatal]
  - Haemolysis [Fatal]
  - Rash [Fatal]
  - Toxicity to various agents [Fatal]
  - Delirium [Fatal]
  - Thrombocytopenia [Fatal]
